FAERS Safety Report 11723351 (Version 1)
Quarter: 2015Q4

REPORT INFORMATION
  Report Type: Spontaneous
  Country: PL (occurrence: PL)
  Receive Date: 20151111
  Receipt Date: 20151111
  Transmission Date: 20160304
  Serious: Yes (Other)
  Sender: FDA-Public Use
  Company Number: PL-PFIZER INC-2015381006

PATIENT
  Age: 44 Year
  Sex: Female
  Weight: 65 kg

DRUGS (1)
  1. SOLU-MEDROL [Suspect]
     Active Substance: METHYLPREDNISOLONE SODIUM SUCCINATE
     Indication: INTERVERTEBRAL DISC DISORDER
     Dosage: ABOUT 0.8 G SINGLE (15MG/KG-1 G)
     Route: 040
     Dates: start: 20140819, end: 20140819

REACTIONS (4)
  - Drug hypersensitivity [Recovering/Resolving]
  - Blood pressure decreased [Recovering/Resolving]
  - Hypoxia [Recovering/Resolving]
  - Chest discomfort [Recovering/Resolving]

NARRATIVE: CASE EVENT DATE: 20140819
